FAERS Safety Report 9294691 (Version 1)
Quarter: 2013Q2

REPORT INFORMATION
  Report Type: Report from Study
  Country: CA (occurrence: CA)
  Receive Date: 20130517
  Receipt Date: 20130517
  Transmission Date: 20140414
  Serious: Yes (Hospitalization)
  Sender: FDA-Public Use
  Company Number: CA-JNJFOC-20130400471

PATIENT
  Age: 26 Year
  Sex: Male
  Weight: 99.6 kg

DRUGS (13)
  1. REMICADE [Suspect]
     Indication: CROHN^S DISEASE
     Route: 042
     Dates: start: 20080807
  2. PREDNISONE [Concomitant]
     Indication: GRANULOMATOSIS WITH POLYANGIITIS
     Route: 048
  3. CALCIUM AND VITAMIN D [Concomitant]
     Indication: OSTEOPOROSIS
     Route: 048
  4. TRAZODONE [Concomitant]
     Indication: SLEEP DISORDER
     Route: 048
  5. HYDROXYZINE [Concomitant]
     Indication: ANTIALLERGIC THERAPY
     Route: 048
  6. CIPRALEX [Concomitant]
     Indication: ANTIDEPRESSANT THERAPY
     Route: 048
  7. ASACOL [Concomitant]
     Indication: CROHN^S DISEASE
     Route: 065
  8. TYLENOL 3 [Concomitant]
     Indication: PAIN
     Dosage: 3
     Route: 065
  9. CODEINE CONTIN [Concomitant]
     Indication: PAIN
     Route: 065
  10. TECTA [Concomitant]
     Indication: GASTROOESOPHAGEAL REFLUX DISEASE
     Dosage: 1 TAB
     Route: 048
  11. BOTOX [Concomitant]
     Indication: HEADACHE
     Route: 050
  12. TYLENOL [Concomitant]
     Indication: PREMEDICATION
     Route: 048
  13. HYCORT ENEMA [Concomitant]
     Route: 065

REACTIONS (9)
  - Biliary tract infection [Recovered/Resolved]
  - Crohn^s disease [Recovered/Resolved]
  - Clostridium difficile infection [Recovering/Resolving]
  - Headache [Unknown]
  - Autoimmune disorder [Unknown]
  - Nausea [Recovering/Resolving]
  - Fatigue [Recovering/Resolving]
  - Arthralgia [Recovering/Resolving]
  - Pain [Recovering/Resolving]
